FAERS Safety Report 23569010 (Version 1)
Quarter: 2024Q1

REPORT INFORMATION
  Report Type: Spontaneous
  Country: US (occurrence: US)
  Receive Date: 20240227
  Receipt Date: 20240227
  Transmission Date: 20240410
  Serious: No
  Sender: FDA-Public Use
  Company Number: US-ORG100014127-2024000022

PATIENT
  Age: 40 Year
  Sex: Female

DRUGS (1)
  1. METYRAPONE [Suspect]
     Active Substance: METYRAPONE
     Indication: Diagnostic procedure
     Dosage: 29.4 MG/KG

REACTIONS (4)
  - Disorientation [Unknown]
  - Taste disorder [Unknown]
  - Dizziness [Unknown]
  - Nausea [Unknown]
